FAERS Safety Report 11155694 (Version 1)
Quarter: 2015Q2

REPORT INFORMATION
  Report Type: Spontaneous
  Country: US (occurrence: None)
  Receive Date: 20150601
  Receipt Date: 20150601
  Transmission Date: 20150821
  Serious: Yes (Hospitalization)
  Sender: FDA-Public Use
  Company Number: None

PATIENT
  Age: 75 Year
  Sex: Male
  Weight: 81.8 kg

DRUGS (1)
  1. IBUPROFEN. [Suspect]
     Active Substance: IBUPROFEN
     Indication: PAIN
     Route: 048
     Dates: start: 20141215, end: 20150416

REACTIONS (6)
  - Gastric haemorrhage [None]
  - Melaena [None]
  - Duodenal ulcer [None]
  - Anaemia [None]
  - Thrombocytopenia [None]
  - Erosive duodenitis [None]

NARRATIVE: CASE EVENT DATE: 20150413
